FAERS Safety Report 16498338 (Version 1)
Quarter: 2019Q2

REPORT INFORMATION
  Report Type: Spontaneous
  Country: US (occurrence: US)
  Receive Date: 20190629
  Receipt Date: 20190629
  Transmission Date: 20190711
  Serious: Yes (Hospitalization, Other)
  Sender: FDA-Public Use
  Company Number: US-ACCORD-134989

PATIENT
  Age: 42 Year
  Sex: Male

DRUGS (3)
  1. CISPLATIN. [Suspect]
     Active Substance: CISPLATIN
     Indication: ADRENOCORTICAL CARCINOMA
     Dosage: FIRST CYCLE
  2. ETOPOSIDE. [Suspect]
     Active Substance: ETOPOSIDE
     Indication: ADRENOCORTICAL CARCINOMA
     Dosage: FIRST CYCLE
  3. DOXORUBICIN [Suspect]
     Active Substance: DOXORUBICIN
     Indication: ADRENOCORTICAL CARCINOMA
     Dosage: FIRST CYCLE

REACTIONS (6)
  - Acute kidney injury [Unknown]
  - Mental status changes [Unknown]
  - Off label use [Unknown]
  - Respiratory depression [Unknown]
  - Myopathy [Unknown]
  - Delirium [Unknown]
